FAERS Safety Report 10144385 (Version 2)
Quarter: 2014Q2

REPORT INFORMATION
  Report Type: Spontaneous
  Country: DE (occurrence: DE)
  Receive Date: 20140430
  Receipt Date: 20140516
  Transmission Date: 20141212
  Serious: Yes (Other)
  Sender: FDA-Public Use
  Company Number: DE-GE HEALTHCARE MEDICAL DIAGNOSTICS-VISP-PR-1404S-0198

PATIENT
  Age: 76 Year
  Sex: Female
  Weight: 65 kg

DRUGS (2)
  1. VISIPAQUE [Suspect]
     Indication: RENAL NEOPLASM
     Route: 042
     Dates: start: 20140428, end: 20140428
  2. VISIPAQUE [Suspect]
     Indication: DIAGNOSTIC PROCEDURE

REACTIONS (3)
  - Rash pustular [Recovering/Resolving]
  - Pruritus [Recovered/Resolved]
  - Malaise [Recovering/Resolving]
